FAERS Safety Report 18393065 (Version 24)
Quarter: 2023Q2

REPORT INFORMATION
  Report Type: Report from Study
  Country: GB (occurrence: GB)
  Receive Date: 20201016
  Receipt Date: 20230522
  Transmission Date: 20230722
  Serious: Yes (Death, Hospitalization, Other)
  Sender: FDA-Public Use
  Company Number: GB-ROCHE-2677215

PATIENT
  Age: 71 Year
  Sex: Female
  Weight: 51.2 kg

DRUGS (104)
  1. LANSOPRAZOLE [Suspect]
     Active Substance: LANSOPRAZOLE
     Indication: Prophylaxis
     Dosage: 1 MILLIGRAM, QD
     Route: 065
     Dates: start: 20170101
  2. LANSOPRAZOLE [Suspect]
     Active Substance: LANSOPRAZOLE
     Dosage: UNK UNK, QD
     Route: 065
     Dates: start: 20200826
  3. LANSOPRAZOLE [Suspect]
     Active Substance: LANSOPRAZOLE
     Dosage: UNK
     Route: 065
  4. CARBOPLATIN [Suspect]
     Active Substance: CARBOPLATIN
     Indication: Non-small cell lung cancer
     Dosage: 450 MILLIGRAM, QD (ENDOTRACHEOPULMONARY INSTILLATION)
     Route: 065
     Dates: start: 20200729
  5. CARBOPLATIN [Suspect]
     Active Substance: CARBOPLATIN
     Indication: Small cell lung cancer extensive stage
  6. FLUCONAZOLE [Suspect]
     Active Substance: FLUCONAZOLE
     Indication: Candida infection
     Dosage: UNK UNK, QD
     Route: 065
  7. FLUCONAZOLE [Suspect]
     Active Substance: FLUCONAZOLE
     Dosage: UNK UNK, QD
     Route: 065
  8. FLUCONAZOLE [Suspect]
     Active Substance: FLUCONAZOLE
     Dosage: 1 DOSAGE FORM, QD
     Route: 065
  9. VORICONAZOLE [Suspect]
     Active Substance: VORICONAZOLE
     Indication: Neutropenic sepsis
     Dosage: UNK UNK, QD
     Route: 065
     Dates: start: 20200830
  10. VORICONAZOLE [Suspect]
     Active Substance: VORICONAZOLE
     Dosage: 1 DF, 1X/DAY
     Route: 065
     Dates: start: 20200830
  11. VORICONAZOLE [Suspect]
     Active Substance: VORICONAZOLE
     Dosage: 1 DF, 1X/DAY
     Route: 065
     Dates: start: 20200830
  12. AMLODIPINE BESYLATE [Suspect]
     Active Substance: AMLODIPINE BESYLATE
     Indication: Hypertension
     Dosage: UNK, QD
     Route: 065
  13. AMLODIPINE BESYLATE [Suspect]
     Active Substance: AMLODIPINE BESYLATE
     Dosage: UNK, QD
     Route: 065
  14. AMLODIPINE BESYLATE [Suspect]
     Active Substance: AMLODIPINE BESYLATE
     Dosage: UNK, QD
     Route: 065
  15. AMLODIPINE BESYLATE [Suspect]
     Active Substance: AMLODIPINE BESYLATE
     Dosage: UNK, QD
     Route: 065
  16. AMLODIPINE BESYLATE [Suspect]
     Active Substance: AMLODIPINE BESYLATE
     Dosage: 1 MILLIGRAM, QD
     Route: 065
  17. VENLAFAXINE HCL [Suspect]
     Active Substance: VENLAFAXINE HYDROCHLORIDE
     Indication: Depression
     Dosage: UNK UNK, QD
     Route: 065
  18. VENLAFAXINE HCL [Suspect]
     Active Substance: VENLAFAXINE HYDROCHLORIDE
     Dosage: UNK, 1X/DAY
     Route: 065
     Dates: start: 20200820
  19. VENLAFAXINE HCL [Suspect]
     Active Substance: VENLAFAXINE HYDROCHLORIDE
     Dosage: UNK, 2X/DAY
     Route: 065
     Dates: start: 20200820
  20. VENLAFAXINE HCL [Suspect]
     Active Substance: VENLAFAXINE HYDROCHLORIDE
     Dosage: UNK UNK, QD
     Route: 065
  21. VENLAFAXINE HCL [Suspect]
     Active Substance: VENLAFAXINE HYDROCHLORIDE
     Dosage: UNK UNK, QD
     Route: 065
  22. VENLAFAXINE HCL [Suspect]
     Active Substance: VENLAFAXINE HYDROCHLORIDE
     Dosage: 1 MILLIGRAM, BID
     Route: 065
  23. VENLAFAXINE HCL [Suspect]
     Active Substance: VENLAFAXINE HYDROCHLORIDE
     Dosage: 1 DF, 2X/DAY
     Route: 065
     Dates: start: 20200820
  24. VENLAFAXINE HCL [Suspect]
     Active Substance: VENLAFAXINE HYDROCHLORIDE
     Dosage: 0.5, QD
     Route: 065
     Dates: start: 20200820
  25. VENLAFAXINE HCL [Suspect]
     Active Substance: VENLAFAXINE HYDROCHLORIDE
     Dosage: UNK, 2X/DAY
     Route: 065
     Dates: start: 20200820
  26. LINEZOLID [Suspect]
     Active Substance: LINEZOLID
     Indication: Neutropenic sepsis
     Dosage: UNK, 1X/DAY
     Route: 065
     Dates: start: 20200830
  27. LINEZOLID [Suspect]
     Active Substance: LINEZOLID
     Dosage: UNK (30-AUG-2020)
     Route: 065
  28. LINEZOLID [Suspect]
     Active Substance: LINEZOLID
     Dosage: 1 DOSAGE FORM, QD, (30-AUG-2020)
     Route: 065
  29. DEXAMETHASONE SODIUM PHOSPHATE [Suspect]
     Active Substance: DEXAMETHASONE SODIUM PHOSPHATE
     Indication: Dysphagia
     Dosage: 1 MILLIGRAM
     Route: 065
     Dates: start: 20200826
  30. DEXAMETHASONE SODIUM PHOSPHATE [Suspect]
     Active Substance: DEXAMETHASONE SODIUM PHOSPHATE
     Dosage: UNK
     Route: 065
  31. DEXAMETHASONE SODIUM PHOSPHATE [Suspect]
     Active Substance: DEXAMETHASONE SODIUM PHOSPHATE
     Dosage: UNK, 1 IN 1 DAY, (25-AUG-2020)
     Route: 065
     Dates: start: 20200825
  32. CIPROFLOXACIN [Suspect]
     Active Substance: CIPROFLOXACIN
     Indication: Prophylaxis
     Dosage: UNK UNK, Q12H
     Route: 065
     Dates: start: 20200827
  33. CIPROFLOXACIN [Suspect]
     Active Substance: CIPROFLOXACIN
     Dosage: 2 DF, 1X/DAY
     Route: 065
     Dates: start: 20200827
  34. CIPROFLOXACIN [Suspect]
     Active Substance: CIPROFLOXACIN
     Dosage: UNK, 2X/DAY
     Route: 065
     Dates: start: 20200827
  35. CIPROFLOXACIN [Suspect]
     Active Substance: CIPROFLOXACIN
     Dosage: UNK, 2X/DAY
     Route: 065
     Dates: start: 20200827
  36. AMOXICILLIN [Suspect]
     Active Substance: AMOXICILLIN
     Dosage: UNK, Q6HR
     Route: 065
     Dates: start: 20200810, end: 20200816
  37. AMOXICILLIN [Suspect]
     Active Substance: AMOXICILLIN
     Dosage: 1 DF, 1X/DAY
     Route: 065
     Dates: start: 20200810, end: 20200816
  38. AMOXICILLIN [Suspect]
     Active Substance: AMOXICILLIN
     Dosage: UNK
     Route: 065
     Dates: start: 20200810, end: 20200816
  39. AMOXICILLIN [Suspect]
     Active Substance: AMOXICILLIN
     Dosage: UNK UNK, 4X/DAY
     Route: 065
     Dates: start: 20200810, end: 20200816
  40. ATEZOLIZUMAB [Suspect]
     Active Substance: ATEZOLIZUMAB
     Indication: Transitional cell carcinoma
     Dosage: 1200 MILLIGRAM, Q3WEEKS
     Route: 041
     Dates: start: 20200729
  41. ATEZOLIZUMAB [Suspect]
     Active Substance: ATEZOLIZUMAB
     Indication: Small cell lung cancer
     Dosage: 1200 MILLIGRAM, Q3W (TIW)
     Dates: start: 20200819
  42. ATEZOLIZUMAB [Suspect]
     Active Substance: ATEZOLIZUMAB
     Indication: Non-small cell lung cancer
  43. ETOPOSIDE [Suspect]
     Active Substance: ETOPOSIDE
     Indication: Non-small cell lung cancer
     Dosage: 148 MG, 1X/DAY
     Route: 065
     Dates: start: 20200729
  44. ETOPOSIDE [Suspect]
     Active Substance: ETOPOSIDE
     Indication: Small cell lung cancer extensive stage
     Dosage: 600 MILLIGRAM, QD
     Route: 048
     Dates: start: 20200730
  45. ETOPOSIDE [Suspect]
     Active Substance: ETOPOSIDE
     Dosage: 148 MG, 1X/DAY
     Route: 065
     Dates: start: 20200729
  46. ETOPOSIDE [Suspect]
     Active Substance: ETOPOSIDE
     Dosage: 600 MILLIGRAM, QD
     Route: 048
     Dates: start: 20200730
  47. ETOPOSIDE [Suspect]
     Active Substance: ETOPOSIDE
     Dosage: 148 MG, 1X/DAY
     Route: 042
     Dates: start: 20200729
  48. ZOPICLONE [Suspect]
     Active Substance: ZOPICLONE
     Indication: Prophylaxis
     Dosage: UNK UNK, QD
     Route: 065
     Dates: start: 20200731
  49. ZOPICLONE [Suspect]
     Active Substance: ZOPICLONE
     Dosage: UNK UNK, QD
     Route: 065
     Dates: start: 20200731
  50. ZOPICLONE [Suspect]
     Active Substance: ZOPICLONE
     Dosage: UNK UNK, QD
     Route: 065
     Dates: start: 20200731
  51. ALBUTEROL [Suspect]
     Active Substance: ALBUTEROL
     Indication: Prophylaxis
     Dosage: UNK
     Route: 065
  52. ALBUTEROL [Suspect]
     Active Substance: ALBUTEROL
     Dosage: UNK
     Route: 065
  53. BENZYDAMINE [Suspect]
     Active Substance: BENZYDAMINE
     Indication: Prophylaxis
     Dosage: UNK
     Route: 065
     Dates: start: 20200819
  54. CLOPIDOGREL [Suspect]
     Active Substance: CLOPIDOGREL BISULFATE
     Indication: Hypertension
     Dosage: UNK UNK, QD
     Route: 065
  55. CLOPIDOGREL [Suspect]
     Active Substance: CLOPIDOGREL BISULFATE
     Dosage: UNK, 1X/DAY
     Route: 065
     Dates: start: 20200827
  56. CLOPIDOGREL [Suspect]
     Active Substance: CLOPIDOGREL BISULFATE
     Dosage: 1 DF, 1X/DAY
     Route: 065
  57. FORMOTEROL [Suspect]
     Active Substance: FORMOTEROL
     Indication: Hypertension
     Dosage: 1 MILLIGRAM, BID
     Route: 065
     Dates: start: 20200301
  58. FORMOTEROL [Suspect]
     Active Substance: FORMOTEROL
     Dosage: 0.5 MG, 1X/DAY
     Route: 065
     Dates: start: 20200301
  59. FORMOTEROL [Suspect]
     Active Substance: FORMOTEROL
     Dosage: 0.5 MG, 2X/DAY
     Route: 065
     Dates: start: 20200301
  60. FORMOTEROL [Suspect]
     Active Substance: FORMOTEROL
     Dosage: UNK UNK, 1X/DAY
     Route: 065
     Dates: start: 20200301
  61. ORAMORPH SR SUSTAINED RELEASE [Suspect]
     Active Substance: MORPHINE SULFATE
     Indication: Pain
     Dosage: 1 MG, 1X/DAY
     Route: 065
     Dates: start: 20200727
  62. ORAMORPH SR SUSTAINED RELEASE [Suspect]
     Active Substance: MORPHINE SULFATE
     Dosage: UNK UNK, 1X/DAY
     Route: 065
     Dates: start: 20200825
  63. ORAMORPH SR SUSTAINED RELEASE [Suspect]
     Active Substance: MORPHINE SULFATE
     Dosage: UNK UNK, 1X/DAY
     Route: 065
     Dates: start: 20200731
  64. ORAMORPH SR SUSTAINED RELEASE [Suspect]
     Active Substance: MORPHINE SULFATE
     Dosage: UNK UNK, 1X/DAY
     Route: 065
     Dates: start: 20200727
  65. ORAMORPH SR SUSTAINED RELEASE [Suspect]
     Active Substance: MORPHINE SULFATE
     Dosage: UNK UNK, 1X/DAY
     Route: 065
     Dates: start: 20200727
  66. ACETAMINOPHEN\CODEINE PHOSPHATE [Suspect]
     Active Substance: ACETAMINOPHEN\CODEINE PHOSPHATE
     Indication: Pain
     Dosage: UNK UNK, BID
     Route: 065
  67. ACETAMINOPHEN\CODEINE PHOSPHATE [Suspect]
     Active Substance: ACETAMINOPHEN\CODEINE PHOSPHATE
     Dosage: UNK UNK, QD
     Route: 065
  68. ACETAMINOPHEN\CODEINE PHOSPHATE [Suspect]
     Active Substance: ACETAMINOPHEN\CODEINE PHOSPHATE
     Dosage: 0.5 MILLIGRAM, QD
     Route: 065
  69. ACETAMINOPHEN\CODEINE PHOSPHATE [Suspect]
     Active Substance: ACETAMINOPHEN\CODEINE PHOSPHATE
     Dosage: UNK UNK, BID
     Route: 065
  70. ACETAMINOPHEN\CODEINE PHOSPHATE [Suspect]
     Active Substance: ACETAMINOPHEN\CODEINE PHOSPHATE
     Dosage: UNK UNK, BID
     Route: 065
  71. TIOTROPIUM [Suspect]
     Active Substance: TIOTROPIUM
     Indication: Chronic obstructive pulmonary disease
     Dosage: UNK UNK, QD
     Route: 065
  72. TIOTROPIUM [Suspect]
     Active Substance: TIOTROPIUM
     Dosage: UNK UNK, QD
     Route: 065
  73. TIOTROPIUM [Suspect]
     Active Substance: TIOTROPIUM
     Dosage: 1 DF, 1X/DAY
     Route: 065
  74. LACTULOSE [Suspect]
     Active Substance: LACTULOSE
     Indication: Prophylaxis
     Dosage: UNK UNK, BID
     Route: 065
  75. LACTULOSE [Suspect]
     Active Substance: LACTULOSE
     Dosage: UNK UNK, QD
     Route: 065
  76. LACTULOSE [Suspect]
     Active Substance: LACTULOSE
     Dosage: UNK
     Route: 065
  77. LACTULOSE [Suspect]
     Active Substance: LACTULOSE
     Dosage: UNK UNK, BID
     Route: 065
  78. LACTULOSE [Suspect]
     Active Substance: LACTULOSE
     Dosage: UNK (2 TIMES PER DAY (Q12H))
     Route: 065
  79. LACTULOSE [Suspect]
     Active Substance: LACTULOSE
     Dosage: 1 DF, 1X/DAY
     Route: 065
  80. LACTULOSE [Suspect]
     Active Substance: LACTULOSE
     Dosage: UNK (0.5, QD 2 TIMES PER DAY)
     Route: 065
  81. LACTULOSE [Suspect]
     Active Substance: LACTULOSE
     Dosage: UNK UNK, QD
     Route: 065
  82. LACTULOSE [Suspect]
     Active Substance: LACTULOSE
     Dosage: UNK UNK, QD
     Route: 065
  83. MORPHINE SULFATE [Suspect]
     Active Substance: MORPHINE SULFATE
     Indication: Pain
     Dosage: UNK UNK, QD
     Route: 065
     Dates: start: 20200727
  84. MORPHINE SULFATE [Suspect]
     Active Substance: MORPHINE SULFATE
     Indication: Prophylaxis
     Dosage: UNK UNK, BID
     Route: 065
     Dates: start: 20200731
  85. MORPHINE SULFATE [Suspect]
     Active Substance: MORPHINE SULFATE
     Dosage: UNK
     Route: 065
     Dates: start: 20200825
  86. MORPHINE SULFATE [Suspect]
     Active Substance: MORPHINE SULFATE
     Dosage: UNK UNK, QD
     Route: 065
     Dates: start: 20200727
  87. MORPHINE SULFATE [Suspect]
     Active Substance: MORPHINE SULFATE
     Dosage: 1 DF, 1X/DAY
     Route: 065
     Dates: start: 20200731
  88. MORPHINE SULFATE [Suspect]
     Active Substance: MORPHINE SULFATE
     Dosage: UNK
     Route: 065
     Dates: start: 20200828
  89. MORPHINE SULFATE [Suspect]
     Active Substance: MORPHINE SULFATE
     Dosage: UNK UNK, BID
     Route: 065
     Dates: start: 20200731
  90. MORPHINE SULFATE [Suspect]
     Active Substance: MORPHINE SULFATE
     Dosage: UNK
     Route: 065
     Dates: start: 20200727
  91. MORPHINE SULFATE [Suspect]
     Active Substance: MORPHINE SULFATE
     Dosage: UNK
     Route: 065
     Dates: start: 20200825
  92. CYCLIZINE [Suspect]
     Active Substance: CYCLIZINE
     Indication: Vomiting
     Dosage: UNK UNK, QID
     Route: 065
  93. CYCLIZINE [Suspect]
     Active Substance: CYCLIZINE
     Indication: Neutropenic sepsis
     Dosage: 4 MILLIGRAM, QD
     Route: 065
  94. CYCLIZINE [Suspect]
     Active Substance: CYCLIZINE
     Dosage: UNK UNK, Q12H
     Route: 065
  95. CYCLIZINE [Suspect]
     Active Substance: CYCLIZINE
     Dosage: 1 DF, 1X/DAY
     Route: 065
  96. CYCLIZINE [Suspect]
     Active Substance: CYCLIZINE
     Dosage: UNK (0.25, QD)
     Route: 065
  97. ZOLMITRIPTAN [Suspect]
     Active Substance: ZOLMITRIPTAN
     Indication: Pain
     Dosage: UNK (ONCE PER DAY)
     Route: 065
  98. POTASSIUM BICARBONATE\POTASSIUM CHLORIDE [Concomitant]
     Active Substance: POTASSIUM BICARBONATE\POTASSIUM CHLORIDE
     Indication: Prophylaxis
     Dosage: UNK UNK, BID
     Dates: start: 20200819
  99. POTASSIUM BICARBONATE\POTASSIUM CHLORIDE [Concomitant]
     Active Substance: POTASSIUM BICARBONATE\POTASSIUM CHLORIDE
     Dosage: UNK
     Dates: start: 20200828, end: 20200901
  100. PHOSPHORIC ACID [Concomitant]
     Active Substance: PHOSPHORIC ACID
     Dosage: UNK UNK, QD
     Route: 065
     Dates: start: 20200825, end: 20200825
  101. MAGNESIUM [Concomitant]
     Active Substance: MAGNESIUM
     Dosage: UNK
     Dates: start: 20200819, end: 20200819
  102. METOCLOPRAMIDE [Concomitant]
     Active Substance: METOCLOPRAMIDE
     Dosage: UNK UNK, QID
  103. PHOSPHATASE [Concomitant]
     Dosage: UNK
     Route: 065
     Dates: start: 20200825, end: 20200825
  104. ONDANSETRON [Concomitant]
     Active Substance: ONDANSETRON
     Dosage: 8 MG
     Route: 065
     Dates: start: 20200729, end: 20200729

REACTIONS (26)
  - Death [Fatal]
  - Vomiting [Fatal]
  - Mucosal inflammation [Fatal]
  - Mouth ulceration [Fatal]
  - Anaemia [Fatal]
  - Decreased appetite [Fatal]
  - Hypomagnesaemia [Fatal]
  - Skin candida [Fatal]
  - Dehydration [Fatal]
  - Headache [Fatal]
  - Dyspnoea [Fatal]
  - Constipation [Fatal]
  - Diarrhoea [Fatal]
  - Gait disturbance [Fatal]
  - Neutropenic sepsis [Fatal]
  - Dysphagia [Fatal]
  - Neutrophil count decreased [Fatal]
  - Hypokalaemia [Fatal]
  - Asthenia [Fatal]
  - Nausea [Fatal]
  - Nervous system disorder [Fatal]
  - Balance disorder [Fatal]
  - Depression [Fatal]
  - Productive cough [Not Recovered/Not Resolved]
  - Candida infection [Unknown]
  - Off label use [Unknown]

NARRATIVE: CASE EVENT DATE: 20200730
